FAERS Safety Report 4393154-7 (Version None)
Quarter: 2004Q3

REPORT INFORMATION
  Report Type: 
  Country: None (occurrence: None)
  Receive Date: 20040702
  Receipt Date: 20040412
  Transmission Date: 20050211
  Serious: Yes (Other)
  Sender: FDA-Public Use
  Company Number: 2004UW07314

PATIENT
  Age: 41 Year
  Sex: Male

DRUGS (3)
  1. CRESTOR [Suspect]
     Indication: BLOOD CHOLESTEROL INCREASED
     Dosage: 10 MG QD PO
     Route: 048
     Dates: start: 20040301
  2. ZOLOFT [Concomitant]
  3. TRICOR [Concomitant]

REACTIONS (2)
  - ANXIETY [None]
  - PANIC ATTACK [None]
